FAERS Safety Report 19631339 (Version 1)
Quarter: 2021Q3

REPORT INFORMATION
  Report Type: Spontaneous
  Country: DE (occurrence: DE)
  Receive Date: 20210729
  Receipt Date: 20210729
  Transmission Date: 20211014
  Serious: Yes (Congenital Anomaly, Other)
  Sender: FDA-Public Use
  Company Number: DE-MYLANLABS-2021M1044921

PATIENT
  Sex: Female

DRUGS (1)
  1. TENOFOVIR DISOPROXIL MYLAN 245 MG [Suspect]
     Active Substance: TENOFOVIR DISOPROXIL
     Indication: PRODUCT USED FOR UNKNOWN INDICATION
     Dosage: UNK
     Route: 048

REACTIONS (2)
  - Gene mutation [Unknown]
  - Foetal exposure during pregnancy [Recovered/Resolved]
